FAERS Safety Report 7954539-2 (Version None)
Quarter: 2011Q4

REPORT INFORMATION
  Report Type: 
  Country: None (occurrence: None)
  Receive Date: 20111202
  Receipt Date: 20111128
  Transmission Date: 20120403
  Serious: Yes (Hospitalization)
  Sender: FDA-Public Use
  Company Number: PHHO2010US19536

PATIENT
  Sex: Male
  Weight: 93.878 kg

DRUGS (12)
  1. PRILOSEC [Concomitant]
  2. CARBOPLATIN [Suspect]
     Indication: METASTATIC MALIGNANT MELANOMA
     Dosage: 684 MG,
     Route: 042
     Dates: start: 20101215, end: 20101215
  3. AFINITOR [Suspect]
     Indication: METASTATIC MALIGNANT MELANOMA
     Dosage: 5 MG
     Route: 048
     Dates: start: 20101215, end: 20101221
  4. PACLITAXEL [Suspect]
     Indication: METASTATIC MALIGNANT MELANOMA
     Dosage: 392 MG,
     Route: 042
     Dates: start: 20101215, end: 20101215
  5. PLAVIX [Concomitant]
  6. FAMOTIDINE [Concomitant]
  7. GEMFIBROZIL [Concomitant]
  8. COREG [Concomitant]
  9. SYMBICORT [Concomitant]
  10. LISINOPRIL [Concomitant]
  11. NITROGLYCERIN [Concomitant]
  12. ADVICOR [Concomitant]
     Indication: HYPERCHOLESTEROLAEMIA
     Dosage: 1000 MG, QD
     Dates: start: 20030101

REACTIONS (4)
  - ASTHENIA [None]
  - CHILLS [None]
  - FEBRILE NEUTROPENIA [None]
  - ABDOMINAL PAIN [None]
